FAERS Safety Report 13945970 (Version 1)
Quarter: 2017Q3

REPORT INFORMATION
  Report Type: Spontaneous
  Country: JP (occurrence: JP)
  Receive Date: 20170907
  Receipt Date: 20170907
  Transmission Date: 20171128
  Serious: Yes (Death, Hospitalization)
  Sender: FDA-Public Use
  Company Number: JP-CORDEN PHARMA LATINA S.P.A.-JP-2017COR000184

PATIENT
  Age: 78 Year
  Sex: Male

DRUGS (5)
  1. ETOPOSIDE. [Suspect]
     Active Substance: ETOPOSIDE
     Indication: T-CELL LYMPHOMA
     Dosage: UNK
  2. PIRARUBICIN [Suspect]
     Active Substance: PIRARUBICIN
     Indication: T-CELL LYMPHOMA
     Dosage: UNK
  3. PREDNISOLONE. [Suspect]
     Active Substance: PREDNISOLONE
     Indication: T-CELL LYMPHOMA
     Dosage: UNK
  4. CYCLOPHOSPHAMIDE. [Suspect]
     Active Substance: CYCLOPHOSPHAMIDE
     Indication: T-CELL LYMPHOMA
     Dosage: UNK
  5. VINCRISTINE [Suspect]
     Active Substance: VINCRISTINE
     Indication: T-CELL LYMPHOMA
     Dosage: UNK

REACTIONS (5)
  - Rectal ulcer haemorrhage [Fatal]
  - Renal tubular injury [Unknown]
  - Cerebral salt-wasting syndrome [Not Recovered/Not Resolved]
  - Neutropenic sepsis [Unknown]
  - Renal salt-wasting syndrome [Not Recovered/Not Resolved]
